FAERS Safety Report 17267598 (Version 1)
Quarter: 2020Q1

REPORT INFORMATION
  Report Type: Spontaneous
  Country: US (occurrence: US)
  Receive Date: 20191220
  Receipt Date: 20191220
  Transmission Date: 20200409
  Serious: No
  Sender: FDA-Public Use
  Company Number: None

PATIENT
  Age: 42 Year
  Sex: Male

DRUGS (1)
  1. EPCLUSA [Suspect]
     Active Substance: SOFOSBUVIR\VELPATASVIR
     Dosage: ?          OTHER DOSE:400-100;?
     Route: 048
     Dates: start: 201909, end: 201912

REACTIONS (5)
  - Withdrawal syndrome [None]
  - Cough [None]
  - Pyrexia [None]
  - Pain [None]
  - Productive cough [None]

NARRATIVE: CASE EVENT DATE: 20191220
